FAERS Safety Report 4566249-2 (Version None)
Quarter: 2005Q1

REPORT INFORMATION
  Report Type: 
  Country: None (occurrence: None)
  Receive Date: 20050201
  Receipt Date: 20040802
  Transmission Date: 20050727
  Serious: Yes (Hospitalization)
  Sender: FDA-Public Use
  Company Number: US-SOLVAY-00204002589

PATIENT
  Age: 23244 Day
  Sex: Female
  Weight: 77 kg

DRUGS (3)
  1. LASIX [Concomitant]
     Indication: OEDEMA
     Dosage: DAILY DOSE:  UNKNOWN
     Route: 048
     Dates: start: 19970101, end: 19980101
  2. ESTRATEST [Suspect]
     Indication: HORMONE REPLACEMENT THERAPY
     Dosage: DAILY DOSE: UNK.
     Route: 048
     Dates: start: 19980701, end: 19981101
  3. PREMARIN [Suspect]
     Indication: HORMONE REPLACEMENT THERAPY
     Dosage: DAILY DOSE: 2.5 MILLIGRAM(S)
     Route: 048
     Dates: start: 19880101, end: 20010901

REACTIONS (2)
  - LIVER DISORDER [None]
  - OVARIAN CANCER [None]
